FAERS Safety Report 4920845-9 (Version None)
Quarter: 2006Q1

REPORT INFORMATION
  Report Type: 
  Country: None (occurrence: None)
  Receive Date: 20060113
  Receipt Date: 20050919
  Transmission Date: 20060701
  Serious: No
  Sender: FDA-Public Use
  Company Number: 2005SP003152

PATIENT

DRUGS (1)
  1. LUNESTA [Suspect]

REACTIONS (1)
  - PARANOIA [None]
